FAERS Safety Report 10379839 (Version 1)
Quarter: 2014Q1

REPORT INFORMATION
  Report Type: Spontaneous
  Country: US (occurrence: None)
  Receive Date: 20140306
  Receipt Date: 20140306
  Transmission Date: 20141002
  Serious: Yes (Other)
  Sender: FDA-Public Use
  Company Number: 163-21880-13022474

PATIENT
  Age: 70 Year
  Sex: Male

DRUGS (2)
  1. REVLIMID (LENALIDOMIDE) (5 MILLIGRAM, CAPSULES) [Suspect]
     Indication: MYELODYSPLASTIC SYNDROME
     Route: 048
     Dates: start: 20120925
  2. CREON (UNKNOWN) [Concomitant]

REACTIONS (3)
  - Anaemia [None]
  - Diarrhoea [None]
  - Dizziness [None]
